FAERS Safety Report 7720317-2 (Version None)
Quarter: 2011Q3

REPORT INFORMATION
  Report Type: 
  Country: None (occurrence: None)
  Receive Date: 20110831
  Receipt Date: 20110826
  Transmission Date: 20111222
  Serious: No
  Sender: FDA-Public Use
  Company Number: US-PFIZER INC-2011199315

PATIENT
  Sex: Female

DRUGS (8)
  1. LEVOTHYROXINE [Concomitant]
     Dosage: 25 UG, UNK
  2. RELPAX [Concomitant]
     Dosage: 40 MG, UNK
  3. OMEPRAZOLE [Concomitant]
     Dosage: 40 MG, UNK
  4. GEMZAR [Concomitant]
     Dosage: 1 G, UNK
  5. IPRATROPIUM [Concomitant]
     Dosage: UNK
  6. SUTENT [Suspect]
     Dosage: 25 MG, 1X/DAY (TAKE ONE CAPSULE BY MOUTH DAILY FOR 14 DAYS ON FOLLOWED BY 7 DAYS OFF)
     Route: 048
  7. ONDANSETRON [Concomitant]
     Dosage: 4 MG, UNK
  8. PROAIR HFA [Concomitant]
     Dosage: UNK

REACTIONS (17)
  - MOUTH ULCERATION [None]
  - DYSGEUSIA [None]
  - SKIN LESION [None]
  - THYROID DISORDER [None]
  - FATIGUE [None]
  - DIARRHOEA [None]
  - WEIGHT DECREASED [None]
  - ALOPECIA [None]
  - NASAL DISORDER [None]
  - CONSTIPATION [None]
  - DIZZINESS [None]
  - PALPITATIONS [None]
  - CHEST DISCOMFORT [None]
  - PAIN [None]
  - DECREASED APPETITE [None]
  - DYSPNOEA [None]
  - NAUSEA [None]
